FAERS Safety Report 14340748 (Version 1)
Quarter: 2018Q1

REPORT INFORMATION
  Report Type: Spontaneous
  Country: FR (occurrence: FR)
  Receive Date: 20180101
  Receipt Date: 20180101
  Transmission Date: 20180509
  Serious: Yes (Hospitalization, Other)
  Sender: FDA-Public Use
  Company Number: FR-MERCK KGAA-2038065

PATIENT
  Age: 46 Year
  Sex: Female
  Weight: 72 kg

DRUGS (5)
  1. NOVOTHYROX [Suspect]
     Active Substance: LEVOTHYROXINE SODIUM
     Indication: AUTOIMMUNE THYROIDITIS
     Route: 048
     Dates: start: 2017, end: 20171116
  2. LEVOTHYROX 100 [Suspect]
     Active Substance: LEVOTHYROXINE SODIUM
     Route: 048
     Dates: start: 2017, end: 20171016
  3. TAMOXIFENE [Suspect]
     Active Substance: TAMOXIFEN
     Route: 048
     Dates: start: 2013, end: 20171019
  4. L-THYROXINE [Suspect]
     Active Substance: LEVOTHYROXINE
     Route: 048
     Dates: start: 2017, end: 20171024
  5. LEVOTHYROX 125 [Suspect]
     Active Substance: LEVOTHYROXINE
     Route: 048
     Dates: start: 1997, end: 20170927

REACTIONS (3)
  - Muscle spasms [Not Recovered/Not Resolved]
  - Fatigue [Not Recovered/Not Resolved]
  - Myalgia [Not Recovered/Not Resolved]

NARRATIVE: CASE EVENT DATE: 201707
